FAERS Safety Report 9044932 (Version 3)
Quarter: 2013Q1

REPORT INFORMATION
  Report Type: Spontaneous
  Country: EG (occurrence: EG)
  Receive Date: 20130130
  Receipt Date: 20130327
  Transmission Date: 20140127
  Serious: Yes (Hospitalization)
  Sender: FDA-Public Use
  Company Number: EG-GLAXOSMITHKLINE-B0862740A

PATIENT
  Age: 74 Year
  Sex: Female

DRUGS (5)
  1. ZOFRAN [Suspect]
     Indication: VOMITING
     Dosage: 8MG TWICE PER DAY
     Route: 042
     Dates: start: 20130115, end: 20130120
  2. SODIUM BICARBONATE [Concomitant]
     Indication: RENAL FAILURE
     Route: 042
     Dates: start: 20130112, end: 20130222
  3. ALFACALCIDOL [Concomitant]
     Indication: RENAL FAILURE
     Dates: start: 20130112
  4. ERYTHROPOIETIN [Concomitant]
     Indication: RENAL FAILURE
     Route: 042
     Dates: start: 20130119
  5. CORTICOSTEROID [Concomitant]
     Indication: RENAL FAILURE
     Route: 048
     Dates: start: 20130112

REACTIONS (6)
  - Hip fracture [Unknown]
  - Movement disorder [Recovered/Resolved]
  - Dystonia [Recovered/Resolved]
  - Tremor [Recovered/Resolved]
  - Fall [Unknown]
  - Hypoaesthesia [Not Recovered/Not Resolved]
